FAERS Safety Report 4878245-6 (Version None)
Quarter: 2006Q1

REPORT INFORMATION
  Report Type: 
  Country: None (occurrence: None)
  Receive Date: 20060111
  Receipt Date: 20050311
  Transmission Date: 20060701
  Serious: Yes (Hospitalization, Disabling)
  Sender: FDA-Public Use
  Company Number: US-MERCK-0503USA02633

PATIENT
  Age: 50 Year
  Sex: Female
  Weight: 72 kg

DRUGS (3)
  1. VIOXX [Suspect]
     Indication: BACK PAIN
     Route: 048
     Dates: end: 20040101
  2. VIOXX [Suspect]
     Indication: MIGRAINE
     Route: 048
     Dates: end: 20040101
  3. EXTRA STRENGTH TYLENOL [Concomitant]
     Route: 048

REACTIONS (7)
  - EMOTIONAL DISTRESS [None]
  - FATIGUE [None]
  - GENERAL SYMPTOM [None]
  - MYOCARDIAL INFARCTION [None]
  - PAIN [None]
  - THROMBOSIS [None]
  - TRANSIENT ISCHAEMIC ATTACK [None]
